FAERS Safety Report 20102331 (Version 1)
Quarter: 2021Q4

REPORT INFORMATION
  Report Type: Spontaneous
  Country: US (occurrence: US)
  Receive Date: 20211123
  Receipt Date: 20211123
  Transmission Date: 20220303
  Serious: No
  Sender: FDA-Public Use
  Company Number: US-NOVOPROD-788892

PATIENT
  Sex: Male

DRUGS (1)
  1. NOVOLOG MIX 70/30 [Suspect]
     Active Substance: INSULIN ASPART
     Indication: Product used for unknown indication
     Dosage: 50 IU, QD(30 UNITS MORNING, 20 UNITS  EVENING)
     Route: 058
     Dates: start: 201908

REACTIONS (1)
  - Injection site vesicles [Unknown]

NARRATIVE: CASE EVENT DATE: 20210201
